FAERS Safety Report 4450038-3 (Version None)
Quarter: 2004Q3

REPORT INFORMATION
  Report Type: 
  Country: None (occurrence: None)
  Receive Date: 20040915
  Receipt Date: 20040427
  Transmission Date: 20050211
  Serious: Yes (Other)
  Sender: FDA-Public Use
  Company Number: US-BRISTOL-MYERS SQUIBB COMPANY-12573218

PATIENT
  Age: 81 Year
  Sex: Male

DRUGS (4)
  1. ERBITUX [Suspect]
     Indication: COLON CANCER
     Route: 042
     Dates: start: 20040427, end: 20040427
  2. BENADRYL [Concomitant]
     Indication: PREMEDICATION
     Dates: start: 20040427, end: 20040427
  3. DECADRON [Concomitant]
     Indication: PREMEDICATION
     Dates: start: 20040427, end: 20040427
  4. PEPCID [Concomitant]
     Indication: PREMEDICATION
     Dates: start: 20040427, end: 20040427

REACTIONS (2)
  - CYANOSIS [None]
  - DYSPNOEA [None]
